FAERS Safety Report 8977156 (Version 2)
Quarter: 2013Q1

REPORT INFORMATION
  Report Type: Spontaneous
  Country: US (occurrence: US)
  Receive Date: 20121220
  Receipt Date: 20130204
  Transmission Date: 20140127
  Serious: Yes (Death, Other)
  Sender: FDA-Public Use
  Company Number: US-ELI_LILLY_AND_COMPANY-US201212005581

PATIENT
  Age: 41 Year
  Sex: Male

DRUGS (1)
  1. ADCIRCA [Suspect]
     Indication: COR PULMONALE CHRONIC
     Dosage: 40 MG, QD

REACTIONS (3)
  - Cardiogenic shock [Fatal]
  - Multi-organ failure [Fatal]
  - Heart valve incompetence [Not Recovered/Not Resolved]
